FAERS Safety Report 5913455-8 (Version None)
Quarter: 2008Q4

REPORT INFORMATION
  Report Type: 
  Country: None (occurrence: None)
  Receive Date: 20081009
  Receipt Date: 20080922
  Transmission Date: 20090506
  Serious: Yes (Hospitalization)
  Sender: FDA-Public Use
  Company Number: BR-ABBOTT-08P-020-0474049-00

PATIENT
  Age: 27 Year
  Sex: Male
  Weight: 80 kg

DRUGS (5)
  1. DEPAKENE [Suspect]
     Indication: EPILEPSY
     Route: 048
     Dates: start: 20060101
  2. DEPAKENE [Suspect]
     Dates: start: 20080828
  3. DEPAKENE [Suspect]
     Indication: EPILEPSY
  4. DEPAKENE [Suspect]
     Dates: start: 20080828
  5. LAMOTRIGINE [Concomitant]
     Indication: EPILEPSY
     Route: 048

REACTIONS (2)
  - APPENDIX DISORDER [None]
  - EPILEPSY [None]
